FAERS Safety Report 12127129 (Version 3)
Quarter: 2016Q2

REPORT INFORMATION
  Report Type: Report from Study
  Country: US (occurrence: US)
  Receive Date: 20160229
  Receipt Date: 20160411
  Transmission Date: 20160815
  Serious: Yes (Hospitalization)
  Sender: FDA-Public Use
  Company Number: US-BIOGEN-2015BI098148

PATIENT
  Age: 58 Year
  Sex: Female

DRUGS (2)
  1. PLEGRIDY [Suspect]
     Active Substance: PEGINTERFERON BETA-1A
     Indication: MULTIPLE SCLEROSIS
     Route: 065
     Dates: start: 20150222, end: 20150413
  2. PLEGRIDY [Suspect]
     Active Substance: PEGINTERFERON BETA-1A
     Route: 065
     Dates: start: 20150807

REACTIONS (31)
  - Lower limb fracture [Recovered/Resolved with Sequelae]
  - Humerus fracture [Recovered/Resolved]
  - Gastrointestinal disorder [Recovered/Resolved]
  - Traumatic liver injury [Recovered/Resolved]
  - Speech disorder [Unknown]
  - Malabsorption [Not Recovered/Not Resolved]
  - Headache [Recovered/Resolved]
  - Femur fracture [Recovered/Resolved]
  - Diarrhoea [Recovered/Resolved]
  - Muscular weakness [Not Recovered/Not Resolved]
  - Influenza like illness [Recovered/Resolved]
  - Road traffic accident [Recovered/Resolved]
  - Radial nerve injury [Not Recovered/Not Resolved]
  - Gait disturbance [Not Recovered/Not Resolved]
  - Wound [Recovered/Resolved]
  - Cardiac arrest [Recovered/Resolved]
  - Injection site pain [Unknown]
  - Laceration [Recovered/Resolved]
  - Pyrexia [Recovered/Resolved]
  - Hair disorder [Unknown]
  - Injection site urticaria [Unknown]
  - Rib fracture [Recovered/Resolved]
  - Nerve injury [Not Recovered/Not Resolved]
  - Small intestinal resection [Recovered/Resolved]
  - Limb asymmetry [Not Recovered/Not Resolved]
  - Injection site swelling [Not Recovered/Not Resolved]
  - Foot fracture [Recovered/Resolved]
  - Pelvic fracture [Recovered/Resolved]
  - Splenic rupture [Recovered/Resolved]
  - Visual impairment [Unknown]
  - Injection site pruritus [Unknown]

NARRATIVE: CASE EVENT DATE: 20150413
